FAERS Safety Report 10409685 (Version 19)
Quarter: 2017Q3

REPORT INFORMATION
  Report Type: Report from Study
  Country: BR (occurrence: BR)
  Receive Date: 20140826
  Receipt Date: 20170707
  Transmission Date: 20171127
  Serious: Yes (Other)
  Sender: FDA-Public Use
  Company Number: PHHY2014BR105839

PATIENT
  Age: 72 Year
  Sex: Female
  Weight: 91 kg

DRUGS (22)
  1. INSULIN HUMAN [Concomitant]
     Active Substance: INSULIN HUMAN
     Indication: DIABETES MELLITUS
     Dosage: 10 IU, UNK
     Route: 030
     Dates: start: 1998
  2. INSULINA NPH [Concomitant]
     Active Substance: INSULIN HUMAN
     Dosage: 70 U, QD
     Route: 058
  3. INSULIN HUMAN [Concomitant]
     Active Substance: INSULIN HUMAN
     Dosage: 85 IU QD, (50 UNITS IN THE MORNING, 30 UNITS IN THE AFTERNOON AND 5 UNITS AT NIGHT)
     Route: 030
  4. SANDOSTATIN LAR DEPOT [Suspect]
     Active Substance: OCTREOTIDE ACETATE
     Indication: ACROMEGALY
     Dosage: 20 MG, QMO ((2 AMPOLUES EVERY 28 DAYS OR 30 DAYS)
     Route: 048
     Dates: start: 200301
  5. SANDOSTATIN LAR DEPOT [Suspect]
     Active Substance: OCTREOTIDE ACETATE
     Dosage: 20 MG, QMO
     Route: 048
  6. CABERGOLINE. [Concomitant]
     Active Substance: CABERGOLINE
     Indication: ACROMEGALY
     Dosage: 2 DF, TIW (2 TABLETS ON MON, WED AND FRI)
     Route: 065
     Dates: start: 2002, end: 2002
  7. INSULINA NPH [Concomitant]
     Active Substance: INSULIN HUMAN
     Indication: DIABETES MELLITUS
     Dosage: (26 U IN MORNING, 26 U AT LUNCH AND 18 U AT NIGHT)
     Route: 058
     Dates: start: 2000
  8. ENALAPRIL [Concomitant]
     Active Substance: ENALAPRIL
     Indication: RENAL DISORDER
     Dosage: 1 DF, QD
     Route: 065
     Dates: start: 2008
  9. ENALAPRIL [Concomitant]
     Active Substance: ENALAPRIL
     Indication: HYPERTENSION
  10. DIOSMIN [Concomitant]
     Active Substance: DIOSMIN
     Indication: PERIPHERAL VASCULAR DISORDER
     Dosage: 1 DF, Q12H
     Route: 048
     Dates: start: 2005
  11. SANDOSTATIN LAR DEPOT [Suspect]
     Active Substance: OCTREOTIDE ACETATE
     Dosage: 40 MG, QMO
     Route: 030
  12. CABERGOLINE. [Concomitant]
     Active Substance: CABERGOLINE
     Dosage: 2 DF, TIW (2 TABLETS ON MON, WED AND FRI)
     Route: 065
     Dates: start: 201602
  13. METFORMIN HYDROCHLORIDE. [Concomitant]
     Active Substance: METFORMIN HYDROCHLORIDE
     Indication: DIABETES MELLITUS
     Dosage: 1 DF, QD
     Route: 048
     Dates: start: 2003
  14. CLORIDRATO DE METFORMINA [Concomitant]
     Indication: PRODUCT USED FOR UNKNOWN INDICATION
     Dosage: 2 DF, QD
     Route: 048
  15. METFORMIN HYDROCHLORIDE. [Concomitant]
     Active Substance: METFORMIN HYDROCHLORIDE
     Dosage: 1 DF, TID (IN THE MORNING, IN THE AFTERNOON AND AT NIGHT)
     Route: 048
     Dates: start: 2010
  16. METFORMIN HYDROCHLORIDE. [Concomitant]
     Active Substance: METFORMIN HYDROCHLORIDE
     Dosage: 2 DF, QD
     Route: 048
  17. SANDOSTATIN LAR DEPOT [Suspect]
     Active Substance: OCTREOTIDE ACETATE
     Dosage: 30 MG, QMO
     Route: 030
  18. INSULIN HUMAN [Concomitant]
     Active Substance: INSULIN HUMAN
     Dosage: 70 IU, QD
     Route: 030
  19. FUROSEMIDE. [Concomitant]
     Active Substance: FUROSEMIDE
     Indication: HYPERTENSION
     Dosage: 1 DF, QD
     Route: 048
     Dates: start: 2008
  20. SELOZOK [Concomitant]
     Active Substance: METOPROLOL SUCCINATE
     Indication: PRODUCT USED FOR UNKNOWN INDICATION
     Dosage: 1 DF, DAILY
     Route: 048
     Dates: start: 2012
  21. AAS [Concomitant]
     Active Substance: ASPIRIN
     Indication: PRODUCT USED FOR UNKNOWN INDICATION
     Dosage: 1 DF, QD
     Route: 048
     Dates: start: 2003
  22. SIMVASTATIN. [Concomitant]
     Active Substance: SIMVASTATIN
     Indication: BLOOD CHOLESTEROL INCREASED
     Dosage: 1 DF, QD
     Route: 065
     Dates: start: 201402

REACTIONS (38)
  - Viral infection [Unknown]
  - Malaise [Unknown]
  - Cataract [Not Recovered/Not Resolved]
  - Eating disorder [Unknown]
  - Weight decreased [Unknown]
  - Movement disorder [Unknown]
  - Spinal pain [Recovering/Resolving]
  - Visual impairment [Unknown]
  - Hypoglycaemia [Recovering/Resolving]
  - Limb injury [Unknown]
  - Feeling abnormal [Unknown]
  - Hypertension [Recovering/Resolving]
  - Oedema peripheral [Not Recovered/Not Resolved]
  - Fall [Unknown]
  - Gait disturbance [Recovering/Resolving]
  - Joint injury [Recovered/Resolved]
  - Weight increased [Recovering/Resolving]
  - Amnesia [Not Recovered/Not Resolved]
  - Incorrect route of drug administration [Unknown]
  - Diabetic retinopathy [Recovering/Resolving]
  - Fall [Recovered/Resolved]
  - Poor quality sleep [Unknown]
  - Osteoarthritis [Recovering/Resolving]
  - Blood growth hormone increased [Not Recovered/Not Resolved]
  - Injection site pain [Recovered/Resolved]
  - Pneumonia [Unknown]
  - Head injury [Unknown]
  - Memory impairment [Unknown]
  - Mass [Recovered/Resolved]
  - Arthralgia [Recovered/Resolved]
  - Insomnia [Recovering/Resolving]
  - Pain in extremity [Unknown]
  - Urinary tract infection [Recovered/Resolved]
  - Neoplasm progression [Not Recovered/Not Resolved]
  - Balance disorder [Unknown]
  - Walking disability [Unknown]
  - Varicose vein [Unknown]
  - Fungal infection [Unknown]

NARRATIVE: CASE EVENT DATE: 2005
